FAERS Safety Report 20931591 (Version 1)
Quarter: 2022Q2

REPORT INFORMATION
  Report Type: Spontaneous
  Country: CN (occurrence: CN)
  Receive Date: 20220608
  Receipt Date: 20220608
  Transmission Date: 20220721
  Serious: Yes (Hospitalization, Disabling, Other)
  Sender: FDA-Public Use
  Company Number: CN-GLAXOSMITHKLINE-CN2022APC086566

PATIENT

DRUGS (4)
  1. LAMOTRIGINE [Suspect]
     Active Substance: LAMOTRIGINE
     Indication: Depression
     Dosage: 1 DF, BID
     Route: 048
     Dates: start: 20220404, end: 20220412
  2. QUETIAPINE FUMARATE [Suspect]
     Active Substance: QUETIAPINE FUMARATE
     Indication: Depression
     Dosage: UNK, QD, 0.250000
     Route: 048
     Dates: start: 20220404, end: 20220412
  3. TANDOSPIRONE CITRATE [Suspect]
     Active Substance: TANDOSPIRONE CITRATE
     Indication: Depression
     Dosage: 1 DF, TID
     Route: 048
     Dates: start: 20220404, end: 20220412
  4. ESCITALOPRAM OXALATE [Suspect]
     Active Substance: ESCITALOPRAM OXALATE
     Indication: Depression
     Dosage: 1 DF, QD
     Route: 048
     Dates: start: 20220404, end: 20220412

REACTIONS (9)
  - Erythema multiforme [Recovering/Resolving]
  - Drug eruption [Recovering/Resolving]
  - Lip erosion [Recovering/Resolving]
  - Oral pain [Recovering/Resolving]
  - Erythema [Recovering/Resolving]
  - Papule [Recovering/Resolving]
  - Pruritus [Recovering/Resolving]
  - Oral mucosa erosion [Recovering/Resolving]
  - Skin discolouration [Recovering/Resolving]

NARRATIVE: CASE EVENT DATE: 20220404
